FAERS Safety Report 9817244 (Version 4)
Quarter: 2015Q2

REPORT INFORMATION
  Report Type: Report from Study
  Country: CZ (occurrence: CZ)
  Receive Date: 20140114
  Receipt Date: 20150505
  Transmission Date: 20150821
  Serious: Yes (Life-Threatening, Hospitalization)
  Sender: FDA-Public Use
  Company Number: CZ-AMGEN-CZECT2014001926

PATIENT
  Age: 69 Year
  Sex: Female

DRUGS (19)
  1. ETANERCEPT [Suspect]
     Active Substance: ETANERCEPT
     Indication: RHEUMATOID ARTHRITIS
     Dosage: 50 MG,1 IN 1 WK
     Route: 058
     Dates: start: 20130424, end: 20131128
  2. ACIDUM FOLICUM [Concomitant]
     Active Substance: FOLIC ACID
     Indication: RHEUMATOID ARTHRITIS
     Dosage: 10 MG, WEEKLY
     Route: 048
     Dates: start: 20110601
  3. LOZAP H [Concomitant]
     Indication: HYPERTENSION
     Dosage: 1 DF, DAILY
     Route: 048
     Dates: start: 1998
  4. NEUROL                             /00595201/ [Concomitant]
     Indication: INSOMNIA
     Dosage: 0.5 MG, DAILY
     Route: 048
     Dates: start: 2001
  5. LOZAP                              /01121602/ [Concomitant]
     Active Substance: LOSARTAN
     Dosage: UNK
  6. VIGANTOL                           /00318501/ [Concomitant]
     Indication: OSTEOPENIA
     Dosage: 15 MG, WEEKLY
     Route: 048
     Dates: start: 2012
  7. JANUVIA [Concomitant]
     Active Substance: SITAGLIPTIN PHOSPHATE
     Indication: TYPE 2 DIABETES MELLITUS
     Dosage: 1 DF, DAILY
     Route: 048
     Dates: start: 2011
  8. AGEN [Concomitant]
     Indication: HYPERTENSION
     Dosage: 5 MG, 2X/DAY
     Route: 048
     Dates: start: 1998
  9. CYNT                               /00985301/ [Concomitant]
     Indication: HYPERTENSION
     Dosage: 0.2 MG, 2X/DAY
     Route: 048
     Dates: start: 2007
  10. ROSUCARD [Concomitant]
     Indication: HYPERLIPIDAEMIA
     Dosage: 10 MG, DAILY
     Route: 048
     Dates: start: 2010
  11. INSULATARD                         /00646002/ [Concomitant]
     Active Substance: INSULIN NOS
     Indication: TYPE 2 DIABETES MELLITUS
     Dosage: 12 IU, DAILY
     Route: 058
     Dates: start: 2011
  12. MEDROL [Concomitant]
     Active Substance: METHYLPREDNISOLONE
     Indication: RHEUMATOID ARTHRITIS
     Dosage: 4 MG, DAILY
     Route: 048
  13. ACYLPYRIN [Concomitant]
     Dosage: 50 MG, DAILY
     Route: 048
     Dates: start: 1998
  14. ETANERCEPT [Suspect]
     Active Substance: ETANERCEPT
     Dosage: UNK
     Route: 065
  15. METHOTREXATE [Concomitant]
     Active Substance: METHOTREXATE
     Indication: RHEUMATOID ARTHRITIS
     Dosage: 20 MG, WEEKLY
     Route: 048
     Dates: start: 20110601
  16. NOVORAPID [Concomitant]
     Active Substance: INSULIN ASPART
     Indication: TYPE 2 DIABETES MELLITUS
     Dosage: 10 IU, DAILY
     Route: 058
     Dates: start: 2011
  17. BETALOC                            /00376902/ [Concomitant]
     Indication: HYPERTENSION
     Dosage: 100 MG, 2X/DAY
     Route: 048
     Dates: start: 1998
  18. IBUPROFEN. [Concomitant]
     Active Substance: IBUPROFEN
     Indication: RHEUMATOID ARTHRITIS
     Dosage: 400 MG, AS NEEDED
     Route: 048
     Dates: start: 2012
  19. ETANERCEPT [Suspect]
     Active Substance: ETANERCEPT
     Dosage: UNK
     Route: 065

REACTIONS (1)
  - Breast cancer [Recovered/Resolved]

NARRATIVE: CASE EVENT DATE: 20131203
